FAERS Safety Report 9199866 (Version 2)
Quarter: 2013Q1

REPORT INFORMATION
  Report Type: Report from Study
  Country: DE (occurrence: DE)
  Receive Date: 20130329
  Receipt Date: 20130329
  Transmission Date: 20140127
  Serious: Yes (Hospitalization)
  Sender: FDA-Public Use
  Company Number: DE-ABBOTT-13P-062-1068587-00

PATIENT
  Sex: Male
  Weight: 51 kg

DRUGS (9)
  1. HUMIRA [Suspect]
     Indication: ANKYLOSING SPONDYLITIS
     Route: 058
     Dates: start: 20120320, end: 201205
  2. FLUPIRTINE [Concomitant]
     Indication: PRODUCT USED FOR UNKNOWN INDICATION
     Dosage: 1-1-1
  3. MARCUMAR [Concomitant]
     Indication: ATRIAL FIBRILLATION
  4. PANTOZOL [Concomitant]
     Indication: PRODUCT USED FOR UNKNOWN INDICATION
     Dosage: 0-0-1
  5. XIPAMID [Concomitant]
     Indication: PRODUCT USED FOR UNKNOWN INDICATION
  6. FALITHROM [Concomitant]
     Indication: PRODUCT USED FOR UNKNOWN INDICATION
  7. DELIX [Concomitant]
     Indication: PRODUCT USED FOR UNKNOWN INDICATION
     Dosage: 1-0-0
  8. TOREM [Concomitant]
     Indication: PRODUCT USED FOR UNKNOWN INDICATION
     Dosage: 0.5-0-0
  9. INNOHEP [Concomitant]
     Indication: PRODUCT USED FOR UNKNOWN INDICATION
     Dosage: AT 8 PM
     Route: 058

REACTIONS (3)
  - Metastases to lymph nodes [Unknown]
  - Pulmonary artery thrombosis [Unknown]
  - Lung adenocarcinoma [Unknown]
